FAERS Safety Report 18222372 (Version 1)
Quarter: 2020Q3

REPORT INFORMATION
  Report Type: Spontaneous
  Country: US (occurrence: US)
  Receive Date: 20200901
  Receipt Date: 20200901
  Transmission Date: 20201103
  Serious: Yes (Hospitalization)
  Sender: FDA-Public Use
  Company Number: None

PATIENT
  Sex: Male

DRUGS (3)
  1. PULMOZYME [Suspect]
     Active Substance: DORNASE ALFA
     Indication: BURKHOLDERIA MALLEI INFECTION
     Dosage: ?          OTHER ROUTE:INH?
     Dates: start: 20200219
  2. BUDESONIDE. [Concomitant]
     Active Substance: BUDESONIDE
  3. TOBRAMYCIN 300MG/5ML 20ML [Suspect]
     Active Substance: TOBRAMYCIN
     Indication: BURKHOLDERIA MALLEI INFECTION
     Dosage: ?          OTHER ROUTE:INH?
     Dates: start: 20200219

REACTIONS (1)
  - Hospitalisation [None]
